FAERS Safety Report 9337746 (Version 1)
Quarter: 2013Q2

REPORT INFORMATION
  Report Type: Spontaneous
  Country: FR (occurrence: FR)
  Receive Date: 20130607
  Receipt Date: 20130607
  Transmission Date: 20140414
  Serious: Yes (Other)
  Sender: FDA-Public Use
  Company Number: FR-ASTRAZENECA-2013SE38339

PATIENT
  Age: 17063 Day
  Sex: Male

DRUGS (5)
  1. DIPRIVAN [Suspect]
     Indication: COLONOSCOPY
     Route: 042
     Dates: start: 20130311
  2. SPASFON [Concomitant]
     Indication: PERIOPERATIVE ANALGESIA
     Route: 042
     Dates: start: 20130311
  3. ACUPAN [Concomitant]
     Indication: ANALGESIC THERAPY
     Route: 042
     Dates: start: 20130311
  4. DEBRIDAT [Concomitant]
     Indication: PERIOPERATIVE ANALGESIA
     Route: 042
     Dates: start: 20130311
  5. PERFALGAN [Concomitant]
     Indication: PERIOPERATIVE ANALGESIA
     Route: 042
     Dates: start: 20130311

REACTIONS (1)
  - Injection site thrombosis [Recovered/Resolved]
